FAERS Safety Report 26054104 (Version 2)
Quarter: 2025Q4

REPORT INFORMATION
  Report Type: Report from Study
  Country: CA (occurrence: CA)
  Receive Date: 20251117
  Receipt Date: 20251221
  Transmission Date: 20260117
  Serious: Yes (Other)
  Sender: PFIZER
  Company Number: CA-PFIZER INC-202500222073

PATIENT
  Age: 31 Year
  Sex: Female

DRUGS (9)
  1. ABRILADA [Suspect]
     Active Substance: ADALIMUMAB-AFZB
     Indication: Uveitis
     Dosage: INDUCTION 80MG WEEK 0 THEN 40MG EVERY 2 WEEKS STARTING WEEK 1
     Route: 058
     Dates: start: 20250925
  2. CELEBREX [Concomitant]
     Active Substance: CELECOXIB
     Dosage: 200 MG
  3. DUREZOL [Concomitant]
     Active Substance: DIFLUPREDNATE
     Dosage: 0.05 %
  4. EYLEA [Concomitant]
     Active Substance: AFLIBERCEPT
     Dosage: 2 MG
  5. METHOTREXATE [Concomitant]
     Active Substance: METHOTREXATE
     Dosage: 15 MG, WEEKLY
  6. FOLIC ACID [Concomitant]
     Active Substance: FOLIC ACID
     Dosage: 5 MG, DAILY
  7. RANITIDINE [Concomitant]
     Active Substance: RANITIDINE
     Dosage: 150 MG
  8. PREDNISONE [Concomitant]
     Active Substance: PREDNISONE
     Dosage: 1 %
  9. SCOPOLAMINE HYDROBROMIDE [Concomitant]
     Active Substance: SCOPOLAMINE HYDROBROMIDE
     Dosage: 10 MG

REACTIONS (1)
  - Gallbladder disorder [Unknown]
